FAERS Safety Report 6338492-3 (Version None)
Quarter: 2009Q3

REPORT INFORMATION
  Report Type: 
  Country: None (occurrence: None)
  Receive Date: 20090901
  Receipt Date: 20090821
  Transmission Date: 20100115
  Serious: Yes (Hospitalization, Other)
  Sender: FDA-Public Use
  Company Number: GXKR2009BR09577

PATIENT
  Age: 69 Year
  Sex: Female
  Weight: 66 kg

DRUGS (3)
  1. CAPTOPRIL (NGX) (CAPTOPRIL) UNKNOWN, 25MG [Suspect]
     Indication: HYPERTENSION
     Dosage: 25 MG, BID, ORAL
     Route: 048
     Dates: start: 20040101, end: 20050101
  2. PROPRANOLOL [Suspect]
     Indication: HYPERTENSION
     Dosage: BID, ORAL
     Route: 048
     Dates: start: 20040101
  3. ASPIRIN [Concomitant]

REACTIONS (2)
  - ARRHYTHMIA [None]
  - COUGH [None]
